FAERS Safety Report 8586395-6 (Version None)
Quarter: 2012Q3

REPORT INFORMATION
  Report Type: 
  Country: None (occurrence: None)
  Receive Date: 20120810
  Receipt Date: 20120808
  Transmission Date: 20120928
  Serious: Yes (Hospitalization)
  Sender: FDA-Public Use
  Company Number: BR-ROCHE-1099457

PATIENT
  Sex: Male

DRUGS (1)
  1. TAMIFLU [Suspect]
     Indication: INFLUENZA
     Dates: start: 20120730, end: 20120730

REACTIONS (4)
  - HYPOAESTHESIA [None]
  - DIZZINESS [None]
  - VISION BLURRED [None]
  - SINUSITIS [None]
